FAERS Safety Report 9027782 (Version 1)
Quarter: 2013Q1

REPORT INFORMATION
  Report Type: Report from Study
  Country: CA (occurrence: CA)
  Receive Date: 20130124
  Receipt Date: 20130124
  Transmission Date: 20140127
  Serious: Yes (Other)
  Sender: FDA-Public Use
  Company Number: CA-JNJFOC-20130107893

PATIENT
  Age: 49 Year
  Sex: Male
  Weight: 86 kg

DRUGS (9)
  1. REMICADE [Suspect]
     Indication: CROHN^S DISEASE
     Route: 042
  2. PANTOLOC [Concomitant]
     Route: 048
  3. VITAMIN D [Concomitant]
     Route: 048
  4. CYANOCOBALAMINE [Concomitant]
     Route: 048
  5. VENTOLIN [Concomitant]
     Dosage: 2 PUFFS
     Route: 065
  6. ADVAIR [Concomitant]
     Dosage: 2 PUFFS
     Route: 055
  7. IMURAN [Concomitant]
     Route: 048
  8. VITAMIN B [Concomitant]
     Route: 048
  9. QUININE [Concomitant]
     Route: 065

REACTIONS (2)
  - Fistula [Unknown]
  - Pruritus generalised [Unknown]
